FAERS Safety Report 17439769 (Version 1)
Quarter: 2020Q1

REPORT INFORMATION
  Report Type: Other
  Country: CA (occurrence: CA)
  Receive Date: 20200220
  Receipt Date: 20200220
  Transmission Date: 20200409
  Serious: Yes (Other)
  Sender: FDA-Public Use
  Company Number: CA-APOTEX-2020AP007672

PATIENT
  Age: 22 Year
  Sex: Female

DRUGS (1)
  1. LEVOFLOXACIN. [Suspect]
     Active Substance: LEVOFLOXACIN
     Indication: URINARY TRACT INFECTION
     Dosage: 500 MG, TOTAL
     Route: 048

REACTIONS (6)
  - Depersonalisation/derealisation disorder [Recovered/Resolved]
  - Hallucination, auditory [Recovered/Resolved]
  - Agitation [Recovered/Resolved]
  - Derealisation [Recovered/Resolved]
  - Nightmare [Recovered/Resolved]
  - Insomnia [Recovered/Resolved]
